FAERS Safety Report 25793357 (Version 1)
Quarter: 2025Q3

REPORT INFORMATION
  Report Type: Spontaneous
  Country: ID (occurrence: ID)
  Receive Date: 20250911
  Receipt Date: 20250911
  Transmission Date: 20251020
  Serious: Yes (Hospitalization)
  Sender: PRINSTON PHARMACEUTICAL
  Company Number: ID-PRINSTON PHARMACEUTICAL INC.-2025PRN00295

PATIENT
  Age: 62 Year
  Sex: Male

DRUGS (1)
  1. ACYCLOVIR [Suspect]
     Active Substance: ACYCLOVIR
     Indication: Herpes zoster oticus
     Dosage: 800 MG, 4X/DAY
     Route: 065

REACTIONS (1)
  - Bradycardia [Recovered/Resolved]
